FAERS Safety Report 9257546 (Version 1)
Quarter: 2013Q2

REPORT INFORMATION
  Report Type: Report from Study
  Country: CA (occurrence: CA)
  Receive Date: 20130426
  Receipt Date: 20130426
  Transmission Date: 20140414
  Serious: Yes (Other)
  Sender: FDA-Public Use
  Company Number: CA-JNJFOC-20130411540

PATIENT
  Age: 45 Year
  Sex: Female
  Weight: 73 kg

DRUGS (2)
  1. REMICADE [Suspect]
     Indication: RHEUMATOID ARTHRITIS
     Dosage: X52 WEEKS
     Route: 042
     Dates: start: 20130305
  2. TYLENOL [Concomitant]
     Indication: PREMEDICATION
     Route: 048

REACTIONS (3)
  - Breast swelling [Unknown]
  - Breast pain [Unknown]
  - Erythema [Unknown]
